FAERS Safety Report 9716943 (Version 1)
Quarter: 2013Q4

REPORT INFORMATION
  Report Type: Spontaneous
  Country: US (occurrence: US)
  Receive Date: 20131127
  Receipt Date: 20131127
  Transmission Date: 20140711
  Serious: No
  Sender: FDA-Public Use
  Company Number: US-GILEAD-2009-0020009

PATIENT
  Sex: Female
  Weight: 97.07 kg

DRUGS (27)
  1. LETAIRIS [Suspect]
     Route: 048
     Dates: start: 20080609
  2. REVATIO [Concomitant]
  3. DIOVAN [Concomitant]
  4. ASPIRIN [Concomitant]
  5. CARTIA XT [Concomitant]
  6. LASIX [Concomitant]
  7. LIPITOR [Concomitant]
  8. PREDNISONE [Concomitant]
  9. SINGULAIR [Concomitant]
  10. ADVAIR DISKUS [Concomitant]
  11. ALBUTEROL [Concomitant]
  12. HUMULIN R [Concomitant]
  13. ACTOS [Concomitant]
  14. LEVOTHYROXINE [Concomitant]
  15. ORENCIA [Concomitant]
  16. FOSAMAX [Concomitant]
  17. ASTELIN NASAL SPRAY [Concomitant]
  18. VERAMYST NASAL SPRAY [Concomitant]
  19. XALATAN [Concomitant]
  20. BENADRYL [Concomitant]
  21. ALPHAGAN [Concomitant]
  22. TRAMADOL [Concomitant]
  23. VITAMIN D [Concomitant]
  24. MELATONIN [Concomitant]
  25. MULTIVITAMIN [Concomitant]
  26. MAG-OXIDE [Concomitant]
  27. OMEGA 3 FISH OIL [Concomitant]

REACTIONS (1)
  - Muscle twitching [Unknown]
